FAERS Safety Report 19072559 (Version 1)
Quarter: 2021Q1

REPORT INFORMATION
  Report Type: Spontaneous
  Country: US (occurrence: US)
  Receive Date: 20210326
  Receipt Date: 20210326
  Transmission Date: 20210420
  Serious: Yes (Other)
  Sender: FDA-Public Use
  Company Number: None

PATIENT
  Age: 60 Year
  Sex: Male

DRUGS (1)
  1. PEGASPARGASE (PEGASPARGASE 750U/ML (PF) INJ, SOLN, 5ML VIL) [Suspect]
     Active Substance: PEGASPARGASE
     Dates: start: 20210211

REACTIONS (2)
  - Anaphylactic reaction [None]
  - Pain [None]

NARRATIVE: CASE EVENT DATE: 20210211
